FAERS Safety Report 15958330 (Version 1)
Quarter: 2019Q1

REPORT INFORMATION
  Report Type: Spontaneous
  Country: JP (occurrence: JP)
  Receive Date: 20190213
  Receipt Date: 20190213
  Transmission Date: 20190417
  Serious: Yes (Other)
  Sender: FDA-Public Use
  Company Number: PHJP2019JP001824

PATIENT
  Age: 76 Year
  Sex: Male

DRUGS (1)
  1. LOCHOL [Suspect]
     Active Substance: FLUVASTATIN SODIUM
     Indication: VASCULAR INJURY
     Dosage: UNK
     Route: 048

REACTIONS (1)
  - Spinal osteoarthritis [Unknown]
